FAERS Safety Report 10415162 (Version 1)
Quarter: 2014Q2

REPORT INFORMATION
  Report Type: Spontaneous
  Country: US (occurrence: None)
  Receive Date: 20140604
  Receipt Date: 20140604
  Transmission Date: 20141212
  Serious: No
  Sender: FDA-Public Use
  Company Number: 163-POMAL-14023413

PATIENT
  Age: 77 Year
  Sex: Male
  Weight: 74.8 kg

DRUGS (14)
  1. POMALYST (POMALIDOMIDE) (4 MILILGRAM, CAPSULES) [Suspect]
     Indication: PLASMA CELL MYELOMA
     Dosage: 21 IN 28D
     Route: 048
     Dates: start: 20130422
  2. NEURONTIN (GABAPENTIN) [Concomitant]
  3. CIPRO (CIPROFLOXACIN) [Concomitant]
  4. NEULASTA (PEGFILGRASTIM) [Concomitant]
  5. DEXAMETHASONE (DEXAMETHASONE) [Concomitant]
  6. AMOXICILLIN (AMOXICILLIN) [Concomitant]
  7. DORZOLAMIDE HCL/TIMOLOL (DORZOLAMIDE HYDROCHLORIDE) [Concomitant]
  8. SYNTHROID (LEVOTHYROXINE SODIUM) [Concomitant]
  9. ASPIRIN (ACETYLSALICYLIC ACID) [Concomitant]
  10. VITAMIN B-12 (CYANOCOBALAMIN) [Concomitant]
  11. EMLA (EMLA) [Concomitant]
  12. MULTIVITAMINS (MULTIVITAMINS) [Concomitant]
  13. LIPITOR (ATORVASTATIN) [Concomitant]
  14. FISH OIL (FISH OIL) [Concomitant]

REACTIONS (2)
  - Hearing impaired [None]
  - Tympanic membrane perforation [None]
